FAERS Safety Report 9028951 (Version 1)
Quarter: 2013Q1

REPORT INFORMATION
  Report Type: Spontaneous
  Country: FR (occurrence: FR)
  Receive Date: 20130124
  Receipt Date: 20130124
  Transmission Date: 20140127
  Serious: Yes (Life-Threatening, Hospitalization, Other)
  Sender: FDA-Public Use
  Company Number: FR-009507513-2009SP027200

PATIENT
  Age: 57 Year
  Sex: Male
  Weight: 100 kg

DRUGS (12)
  1. ESMERON [Suspect]
     Indication: INDUCTION OF ANAESTHESIA
     Dosage: 100 MG, ONCE
     Route: 040
     Dates: start: 20090922, end: 20090922
  2. REMIFENTANIL HYDROCHLORIDE [Concomitant]
     Indication: INDUCTION OF ANAESTHESIA
     Dosage: 1200 ?G, ONCE
     Route: 042
     Dates: start: 20090922, end: 20090922
  3. DIPRIVAN [Concomitant]
     Indication: ANAESTHESIA PROCEDURE
     Dosage: ADMINISTRATION TIME 15:25
     Route: 042
     Dates: start: 20090922, end: 20090922
  4. ATARAX (HYDROXYZINE HYDROCHLORIDE) [Concomitant]
     Indication: PREMEDICATION
     Dosage: 1 DF, QD
     Route: 048
     Dates: start: 20090921, end: 20090922
  5. ALPRAZOLAM MYLAN [Concomitant]
     Indication: PREMEDICATION
     Dosage: 1 DF, ONCE
     Route: 048
     Dates: start: 20090921, end: 20090922
  6. INEXIUM [Concomitant]
     Indication: PRODUCT USED FOR UNKNOWN INDICATION
     Dosage: INEXIUM 20
  7. LEVOTHYROX [Concomitant]
     Indication: PRODUCT USED FOR UNKNOWN INDICATION
     Dosage: LEVOTHYROX 100
  8. TAHOR [Concomitant]
     Indication: PRODUCT USED FOR UNKNOWN INDICATION
     Dosage: TAHOR 40
  9. ASPEGIC [Concomitant]
     Indication: PRODUCT USED FOR UNKNOWN INDICATION
     Dosage: ASPEGIC 100
  10. PLAVIX [Concomitant]
     Indication: PRODUCT USED FOR UNKNOWN INDICATION
  11. LOVENOX [Concomitant]
     Indication: PRODUCT USED FOR UNKNOWN INDICATION
  12. TENORMINE [Concomitant]
     Indication: PRODUCT USED FOR UNKNOWN INDICATION
     Dosage: TENORMINE 50

REACTIONS (4)
  - Cardiac arrest [Recovered/Resolved]
  - Anaphylactic shock [Recovered/Resolved]
  - Bronchospasm [Recovered/Resolved]
  - Flushing [Recovered/Resolved]
